FAERS Safety Report 6940705-1 (Version None)
Quarter: 2010Q3

REPORT INFORMATION
  Report Type: 
  Country: None (occurrence: None)
  Receive Date: 20100825
  Receipt Date: 20100817
  Transmission Date: 20110219
  Serious: Yes (Death)
  Sender: FDA-Public Use
  Company Number: FR-ROCHE-721942

PATIENT
  Age: 65 Year
  Sex: Female
  Weight: 67 kg

DRUGS (1)
  1. CAPECITABINE [Suspect]
     Dosage: DOSE CYCLIC
     Route: 065
     Dates: start: 20060125

REACTIONS (1)
  - MALIGNANT NEOPLASM PROGRESSION [None]
